FAERS Safety Report 12802263 (Version 1)
Quarter: 2016Q4

REPORT INFORMATION
  Report Type: Spontaneous
  Country: US (occurrence: US)
  Receive Date: 20161003
  Receipt Date: 20161003
  Transmission Date: 20170207
  Serious: No
  Sender: FDA-Public Use
  Company Number: US-JAZZ-2016-US-012446

PATIENT
  Sex: Female

DRUGS (23)
  1. ELESTRIN [Concomitant]
     Active Substance: ESTRADIOL
  2. NAPROXEN. [Concomitant]
     Active Substance: NAPROXEN
  3. NYSTATIN. [Concomitant]
     Active Substance: NYSTATIN
  4. ROCEPHIN [Concomitant]
     Active Substance: CEFTRIAXONE SODIUM
  5. ZOFRAN [Concomitant]
     Active Substance: ONDANSETRON HYDROCHLORIDE
  6. XYREM [Suspect]
     Active Substance: SODIUM OXYBATE
     Indication: CATAPLEXY
     Dosage: 4.5 G, BID
     Route: 048
     Dates: start: 201601
  7. PROBIOTIC [Concomitant]
     Active Substance: PROBIOTICS NOS
  8. URSODIOL. [Concomitant]
     Active Substance: URSODIOL
  9. BACLOFEN. [Concomitant]
     Active Substance: BACLOFEN
  10. LEXAPRO [Concomitant]
     Active Substance: ESCITALOPRAM OXALATE
  11. XYREM [Suspect]
     Active Substance: SODIUM OXYBATE
     Indication: NARCOLEPSY
     Dosage: 3 G, BID
     Route: 048
     Dates: start: 201512, end: 201601
  12. VITAMIN D3 [Concomitant]
     Active Substance: CHOLECALCIFEROL
  13. MALARONE [Concomitant]
     Active Substance: ATOVAQUONE\PROGUANIL HYDROCHLORIDE
  14. ANTIBIOTIC [Concomitant]
     Active Substance: UNSPECIFIED INGREDIENT
  15. MILK THISTLE [Concomitant]
     Active Substance: MILK THISTLE
  16. NAMENDA [Concomitant]
     Active Substance: MEMANTINE HYDROCHLORIDE
  17. OMEGA 3 FISH OIL [Concomitant]
     Active Substance: FISH OIL\OMEGA-3 FATTY ACIDS
  18. NUVIGIL [Concomitant]
     Active Substance: ARMODAFINIL
  19. CLINDAMYCIN HCL [Concomitant]
     Active Substance: CLINDAMYCIN HYDROCHLORIDE
  20. ATIVAN [Concomitant]
     Active Substance: LORAZEPAM
  21. RANITIDINE. [Concomitant]
     Active Substance: RANITIDINE
  22. NEURONTIN [Concomitant]
     Active Substance: GABAPENTIN
  23. MERREM [Concomitant]
     Active Substance: MEROPENEM

REACTIONS (4)
  - Drug dose omission [Unknown]
  - Memory impairment [Unknown]
  - Insomnia [Unknown]
  - Somnolence [Unknown]
